FAERS Safety Report 8258818-3 (Version None)
Quarter: 2012Q1

REPORT INFORMATION
  Report Type: 
  Country: None (occurrence: None)
  Receive Date: 20120322
  Receipt Date: 20120207
  Transmission Date: 20120608
  Serious: Yes (Hospitalization)
  Sender: FDA-Public Use
  Company Number: UTC-015282

PATIENT
  Age: 65 Year
  Sex: Female
  Weight: 77.1 kg

DRUGS (6)
  1. DIURETICS (DIURETICS) [Concomitant]
  2. PREDNISONE TAB [Concomitant]
  3. TYVASO [Suspect]
     Indication: PULMONARY ARTERIAL HYPERTENSION
     Dosage: 216 MCG (54 MCG,4 IN 1 D),INHALATION
     Route: 055
     Dates: start: 20110914
  4. DIGOXIN [Concomitant]
  5. TRACLEER [Concomitant]
  6. NIFEDIPINE [Concomitant]

REACTIONS (1)
  - RED BLOOD CELL COUNT DECREASED [None]
